FAERS Safety Report 8474400 (Version 3)
Quarter: 2012Q4

REPORT INFORMATION
  Report Type: 
  Country: JP (occurrence: JP)
  Receive Date: 20120323
  Receipt Date: 20120911
  Transmission Date: 20130627
  Serious: Yes (Life-Threatening, Hospitalization, Other)
  Sender: FDA-Public Use
  Company Number: JP-BRISTOL-MYERS SQUIBB COMPANY-16455560

PATIENT
  Age: 41 Year
  Sex: Male
  Weight: 68 kg

DRUGS (6)
  1. ORENCIA FOR INJ 250 MG/VIAL [Suspect]
     Indication: RHEUMATOID ARTHRITIS
     Dosage: inf 9
     Route: 041
     Dates: start: 20110722, end: 20120224
  2. METHOTREXATE [Concomitant]
     Route: 048
  3. FOLIAMIN [Concomitant]
     Route: 048
  4. PREDONINE [Concomitant]
     Route: 048
  5. PARIET [Concomitant]
     Route: 048
  6. CELECOXIB [Concomitant]
     Route: 048

REACTIONS (2)
  - Aortic dissection [Recovered/Resolved]
  - Blood pressure increased [Recovering/Resolving]
